FAERS Safety Report 11382324 (Version 1)
Quarter: 2015Q3

REPORT INFORMATION
  Report Type: Spontaneous
  Country: US (occurrence: US)
  Receive Date: 20150811
  Receipt Date: 20150811
  Transmission Date: 20151125
  Serious: No
  Sender: FDA-Public Use
  Company Number: US-ELI_LILLY_AND_COMPANY-US201006002230

PATIENT
  Sex: Male

DRUGS (2)
  1. TADALAFIL [Suspect]
     Active Substance: TADALAFIL
     Indication: ERECTILE DYSFUNCTION
     Dosage: 40 MG, DAILY (1/D)
     Route: 065
     Dates: start: 2009
  2. TADALAFIL [Suspect]
     Active Substance: TADALAFIL
     Dosage: 20 MG, DAILY (1/D)
     Route: 065

REACTIONS (4)
  - Anxiety [Unknown]
  - Drug ineffective [Not Recovered/Not Resolved]
  - Overdose [Unknown]
  - Depressed mood [Unknown]

NARRATIVE: CASE EVENT DATE: 2009
